FAERS Safety Report 23799504 (Version 2)
Quarter: 2024Q2

REPORT INFORMATION
  Report Type: Spontaneous
  Country: US (occurrence: US)
  Receive Date: 20240430
  Receipt Date: 20240617
  Transmission Date: 20240716
  Serious: Yes (Death, Hospitalization, Other)
  Sender: FDA-Public Use
  Company Number: US-BAYER-2024A060534

PATIENT
  Age: 61 Year
  Sex: Male
  Weight: 81.633 kg

DRUGS (4)
  1. STIVARGA [Suspect]
     Active Substance: REGORAFENIB\REGORAFENIB MONOHYDRATE
     Indication: Colon cancer
     Dosage: FOR 1 DAY
  2. STIVARGA [Suspect]
     Active Substance: REGORAFENIB\REGORAFENIB MONOHYDRATE
     Indication: Colon cancer
     Dosage: UNK
     Dates: start: 20240324
  3. LONSURF [Suspect]
     Active Substance: TIPIRACIL HYDROCHLORIDE\TRIFLURIDINE
     Indication: Rectal cancer
     Dosage: 75 MG, BID (1-5 AND 8-12 OF A 28-DAY CYCLE)
     Route: 048
     Dates: start: 202311
  4. LONSURF [Suspect]
     Active Substance: TIPIRACIL HYDROCHLORIDE\TRIFLURIDINE
     Indication: Colorectal cancer
     Dosage: 75 MG, BID (1-5 AND 8-12 OF A 28-DAY CYCLE)
     Route: 048

REACTIONS (7)
  - Colon cancer [Fatal]
  - Failure to thrive [Fatal]
  - Haematological infection [Recovering/Resolving]
  - Pyrexia [None]
  - Fatigue [Unknown]
  - Asthenia [Unknown]
  - Bone pain [Unknown]
